FAERS Safety Report 5071655-6 (Version None)
Quarter: 2006Q3

REPORT INFORMATION
  Report Type: 
  Country: None (occurrence: None)
  Receive Date: 20060803
  Receipt Date: 20060803
  Transmission Date: 20061208
  Serious: Yes (Hospitalization)
  Sender: FDA-Public Use
  Company Number: None

PATIENT
  Age: 41 Year
  Sex: Female
  Weight: 85 kg

DRUGS (5)
  1. HUMIRA [Suspect]
     Indication: RHEUMATOID ARTHRITIS
     Dosage: 40 MG SQ/2WK
     Route: 058
  2. METHOTREXATE [Suspect]
     Dosage: 12.5 MG SQ /WK
     Route: 058
  3. PREDNISONE [Concomitant]
  4. ZOLOFT [Concomitant]
  5. FOLIC ACID [Concomitant]

REACTIONS (1)
  - PHOTOSENSITIVITY REACTION [None]
